FAERS Safety Report 9401228 (Version 1)
Quarter: 2013Q3

REPORT INFORMATION
  Report Type: Spontaneous
  Country: GB (occurrence: GB)
  Receive Date: 20130715
  Receipt Date: 20130715
  Transmission Date: 20140515
  Serious: Yes (Other)
  Sender: FDA-Public Use
  Company Number: GB-MYLANLABS-2013S1014728

PATIENT
  Age: 64 Year
  Sex: Male

DRUGS (4)
  1. TAMSULOSIN [Suspect]
     Indication: PRODUCT USED FOR UNKNOWN INDICATION
  2. VESICARE [Suspect]
     Indication: PRODUCT USED FOR UNKNOWN INDICATION
     Dates: start: 20130405, end: 20130502
  3. FINASTERIDE [Concomitant]
     Indication: PROSTATOMEGALY
  4. INSULIN [Concomitant]
     Indication: DIABETES MELLITUS
     Dates: start: 201208

REACTIONS (10)
  - Abnormal dreams [Unknown]
  - Vision blurred [Unknown]
  - Constipation [Unknown]
  - Dizziness [Unknown]
  - Headache [Unknown]
  - Dysuria [Unknown]
  - Urinary retention [Unknown]
  - Lip swelling [Recovered/Resolved]
  - Fatigue [Recovered/Resolved]
  - Urinary tract infection [Recovered/Resolved]
